FAERS Safety Report 6701039-3 (Version None)
Quarter: 2010Q2

REPORT INFORMATION
  Report Type: 
  Country: None (occurrence: None)
  Receive Date: 20100428
  Receipt Date: 20100422
  Transmission Date: 20101027
  Serious: Yes (Other)
  Sender: FDA-Public Use
  Company Number: SG-ABBOTT-10P-141-0635581-00

PATIENT
  Age: 54 Year
  Sex: Male

DRUGS (1)
  1. NIASPAN [Suspect]
     Indication: HYPERLIPIDAEMIA
     Route: 048
     Dates: end: 20091221

REACTIONS (1)
  - STEVENS-JOHNSON SYNDROME [None]
